FAERS Safety Report 26061172 (Version 1)
Quarter: 2025Q4

REPORT INFORMATION
  Report Type: Spontaneous
  Country: CN (occurrence: CN)
  Receive Date: 20251118
  Receipt Date: 20251118
  Transmission Date: 20260118
  Serious: Yes (Other)
  Sender: SANDOZ
  Company Number: CN-SANDOZ-SDZ2025CN085590

PATIENT
  Age: 32 Year
  Sex: Male
  Weight: 32 kg

DRUGS (2)
  1. MONTELUKAST SODIUM [Suspect]
     Active Substance: MONTELUKAST SODIUM
     Indication: Cough
     Dosage: 10 MG, QD
     Route: 048
     Dates: start: 20251030, end: 20251030
  2. KETOTIFEN FUMARATE [Concomitant]
     Active Substance: KETOTIFEN FUMARATE
     Indication: Asthma
     Dosage: 1 MG
     Route: 048
     Dates: start: 20251030, end: 20251031

REACTIONS (2)
  - Dysphoria [Recovered/Resolved]
  - Agitation [Recovered/Resolved]

NARRATIVE: CASE EVENT DATE: 20251031
